FAERS Safety Report 10317579 (Version 3)
Quarter: 2015Q1

REPORT INFORMATION
  Report Type: Other
  Country: US (occurrence: US)
  Receive Date: 20140719
  Receipt Date: 20150320
  Transmission Date: 20150720
  Serious: Yes (Hospitalization, Other)
  Sender: FDA-Public Use
  Company Number: US-GSKPPD-2014GSK018495

PATIENT
  Age: 51 Year
  Sex: Female

DRUGS (6)
  1. GLUCOPHAGE [Concomitant]
     Active Substance: METFORMIN HYDROCHLORIDE
  2. AVANDIA [Suspect]
     Active Substance: ROSIGLITAZONE MALEATE
     Indication: DIABETES MELLITUS
     Dosage: AVANDIA WAS NOT LISTED AMONG THE PATIENTS RECORDS REVIEWED.
     Route: 048
  3. GLUCOTROL [Concomitant]
     Active Substance: GLIPIZIDE
  4. REZULIN [Concomitant]
     Active Substance: TROGLITAZONE
  5. LOPID [Concomitant]
     Active Substance: GEMFIBROZIL
  6. ACCUPRIL [Concomitant]
     Active Substance: QUINAPRIL HYDROCHLORIDE

REACTIONS (1)
  - Cardiac failure congestive [Recovered/Resolved]

NARRATIVE: CASE EVENT DATE: 19991214
